FAERS Safety Report 16090390 (Version 1)
Quarter: 2019Q1

REPORT INFORMATION
  Report Type: Spontaneous
  Country: US (occurrence: US)
  Receive Date: 20190319
  Receipt Date: 20190319
  Transmission Date: 20190418
  Serious: No
  Sender: FDA-Public Use
  Company Number: US-PERRIGO-18US004940

PATIENT
  Sex: Female

DRUGS (1)
  1. NICOTINE POLACRILEX [Suspect]
     Active Substance: NICOTINE
     Indication: SMOKING CESSATION THERAPY
     Dosage: 2 MG, PRN
     Route: 002
     Dates: start: 2015

REACTIONS (2)
  - Aphonia [Not Recovered/Not Resolved]
  - Nicotine dependence [Not Recovered/Not Resolved]

NARRATIVE: CASE EVENT DATE: 2015
